FAERS Safety Report 7659892-5 (Version None)
Quarter: 2011Q3

REPORT INFORMATION
  Report Type: 
  Country: None (occurrence: None)
  Receive Date: 20110805
  Receipt Date: 20110726
  Transmission Date: 20111222
  Serious: Yes (Hospitalization, Other)
  Sender: FDA-Public Use
  Company Number: US-ABBOTT-11P-163-0841866-01

PATIENT
  Sex: Female

DRUGS (16)
  1. HUMIRA [Suspect]
     Route: 058
     Dates: start: 20100104, end: 20100202
  2. HYDROXYZINE HCL [Concomitant]
     Indication: PRODUCT USED FOR UNKNOWN INDICATION
     Dosage: EVERY NIGHT
  3. HUMIRA [Suspect]
     Dosage: BASELINE
     Route: 058
  4. METOPROLOL TARTRATE [Concomitant]
     Indication: HYPERTENSION
  5. CLONAZEPAM [Concomitant]
     Indication: RESTLESS LEGS SYNDROME
  6. ASPIRIN [Concomitant]
     Indication: MYOCARDIAL INFARCTION
  7. HUMIRA [Suspect]
     Route: 058
     Dates: start: 20091104, end: 20091211
  8. ZYRTEC [Concomitant]
     Indication: HYPERSENSITIVITY
  9. HUMIRA [Suspect]
     Dosage: WEEK 2
     Route: 058
  10. LOMOTIL [Concomitant]
     Indication: DIARRHOEA
  11. HUMIRA [Suspect]
     Indication: CROHN'S DISEASE
     Route: 058
     Dates: start: 20091020
  12. PREDNISONE [Concomitant]
     Indication: CROHN'S DISEASE
  13. NEXIUM [Concomitant]
     Indication: DYSPEPSIA
  14. PROSED/DS [Concomitant]
     Indication: TUBULOINTERSTITIAL NEPHRITIS
  15. ELMIRON [Concomitant]
     Indication: CYSTITIS INTERSTITIAL
  16. REMICADE [Concomitant]
     Indication: CROHN'S DISEASE

REACTIONS (1)
  - CROHN'S DISEASE [None]
